FAERS Safety Report 8041909-X (Version None)
Quarter: 2012Q1

REPORT INFORMATION
  Report Type: 
  Country: None (occurrence: None)
  Receive Date: 20120112
  Receipt Date: 20120112
  Transmission Date: 20120608
  Serious: Yes (Hospitalization, Other)
  Sender: FDA-Public Use
  Company Number: None

PATIENT
  Age: 54 Year
  Sex: Female

DRUGS (1)
  1. CIPROFLOXACIN HCL [Suspect]
     Indication: KIDNEY INFECTION
     Dosage: 1 TABLET
     Dates: start: 20111224, end: 20111229

REACTIONS (4)
  - ASTHENIA [None]
  - PAIN [None]
  - DYSPNOEA [None]
  - DRUG INTERACTION [None]
